FAERS Safety Report 8648923 (Version 4)
Quarter: 2012Q4

REPORT INFORMATION
  Report Type: 
  Country: JP (occurrence: JP)
  Receive Date: 20120704
  Receipt Date: 20120830
  Transmission Date: 20130627
  Serious: Yes (Other)
  Sender: FDA-Public Use
  Company Number: JP-PFIZER INC-2012157808

PATIENT
  Age: 69 Year
  Sex: Female

DRUGS (4)
  1. LIPITOR [Suspect]
     Indication: DYSLIPIDAEMIA
     Dosage: 10 mg, daily
     Route: 048
  2. AROMASIN [Suspect]
     Dosage: 25 mg, daily
     Route: 048
  3. NESINA [Suspect]
     Dosage: 25 mg, daily
     Route: 048
  4. MAGLAX [Concomitant]
     Dosage: UNK
     Route: 048

REACTIONS (2)
  - Gamma-glutamyltransferase increased [Unknown]
  - Blood alkaline phosphatase increased [Unknown]
